FAERS Safety Report 5303858-7 (Version None)
Quarter: 2007Q1

REPORT INFORMATION
  Report Type: 
  Country: None (occurrence: None)
  Receive Date: 20070201
  Receipt Date: 20061121
  Transmission Date: 20070707
  Serious: No
  Sender: FDA-Public Use
  Company Number: 2006PV025705

PATIENT
  Age: 68 Year
  Sex: Female
  Weight: 119.7496 kg

DRUGS (4)
  1. BYETTA [Suspect]
     Indication: DIABETES MELLITUS NON-INSULIN-DEPENDENT
     Dosage: 10 MCG; BID; SC
     Route: 058
     Dates: start: 20060101
  2. GLIMEPIRIDE [Concomitant]
  3. GLUCOPHAGE [Concomitant]
  4. GLIMEPIRIDE [Concomitant]

REACTIONS (9)
  - BLOOD GLUCOSE DECREASED [None]
  - DIARRHOEA [None]
  - DYSGEUSIA [None]
  - DYSPEPSIA [None]
  - EARLY SATIETY [None]
  - ERUCTATION [None]
  - INFLUENZA [None]
  - VOMITING [None]
  - WEIGHT DECREASED [None]
